FAERS Safety Report 6265136-1 (Version None)
Quarter: 2009Q3

REPORT INFORMATION
  Report Type: 
  Country: None (occurrence: None)
  Receive Date: 20090709
  Receipt Date: 20090709
  Transmission Date: 20100115
  Serious: Yes (Other)
  Sender: FDA-Public Use
  Company Number: None

PATIENT
  Sex: Female
  Weight: 77.1115 kg

DRUGS (5)
  1. HYDROXYCHLOROQUINE SULFATE [Suspect]
     Indication: POLYMYALGIA RHEUMATICA
     Dosage: 1 TABLET 200MG 1 A DAY ORAL
     Route: 048
     Dates: start: 20090505, end: 20090602
  2. AGGRENOX [Concomitant]
  3. XANAX [Concomitant]
  4. VESICARE [Concomitant]
  5. PREVACID [Concomitant]

REACTIONS (2)
  - PRURITUS [None]
  - RASH ERYTHEMATOUS [None]
